FAERS Safety Report 4466368-5 (Version None)
Quarter: 2004Q4

REPORT INFORMATION
  Report Type: 
  Country: None (occurrence: None)
  Receive Date: 20041005
  Receipt Date: 20030815
  Transmission Date: 20050328
  Serious: Yes (Other)
  Sender: FDA-Public Use
  Company Number: PHBS2003FR08779

PATIENT
  Age: 52 Year
  Sex: Female
  Weight: 65 kg

DRUGS (4)
  1. SINEMET [Concomitant]
  2. REQUIP [Concomitant]
  3. PARLODEL [Suspect]
     Indication: PARKINSON'S DISEASE
     Dosage: 40 MG/DAY
     Route: 048
     Dates: start: 19970101, end: 20030101
  4. MODOPAR [Suspect]
     Dosage: 125 MG, TID
     Dates: start: 19990101, end: 20010101

REACTIONS (2)
  - HYPOMANIA [None]
  - PATHOLOGICAL GAMBLING [None]
